FAERS Safety Report 10270336 (Version 4)
Quarter: 2014Q3

REPORT INFORMATION
  Report Type: Spontaneous
  Country: US (occurrence: US)
  Receive Date: 20140701
  Receipt Date: 20140806
  Transmission Date: 20150326
  Serious: Yes (Other)
  Sender: FDA-Public Use
  Company Number: US-PFIZER INC-2014177575

PATIENT
  Age: 74 Year
  Sex: Female
  Weight: 65.76 kg

DRUGS (4)
  1. ALPRAZOLAM. [Suspect]
     Active Substance: ALPRAZOLAM
     Indication: PANIC DISORDER
  2. ALVESCO [Concomitant]
     Active Substance: CICLESONIDE
     Indication: ASTHMA
     Dosage: 160 UG, 1X/DAY
  3. COMBIVENT-RESPIMATE [Concomitant]
     Indication: ASTHMA
     Dosage: UNK, 2X/DAY
  4. ALPRAZOLAM. [Suspect]
     Active Substance: ALPRAZOLAM
     Indication: GENERALISED ANXIETY DISORDER
     Dosage: 0.5 MG, 2X/DAY
     Route: 048

REACTIONS (9)
  - Paraesthesia [Unknown]
  - Product solubility abnormal [Unknown]
  - Arterial occlusive disease [Unknown]
  - Drug ineffective [Unknown]
  - Somnolence [Unknown]
  - Heart rate decreased [Unknown]
  - Sedation [Unknown]
  - Fatigue [Unknown]
  - Product quality issue [Unknown]

NARRATIVE: CASE EVENT DATE: 2011
